FAERS Safety Report 7562159-7 (Version None)
Quarter: 2011Q2

REPORT INFORMATION
  Report Type: 
  Country: None (occurrence: None)
  Receive Date: 20110614
  Receipt Date: 20110531
  Transmission Date: 20111010
  Serious: Yes (Death, Other)
  Sender: FDA-Public Use
  Company Number: 2011MA006584

PATIENT

DRUGS (2)
  1. CARBOPLATIN [Concomitant]
  2. PACLITAXEL [Suspect]
     Indication: ADENOCARCINOMA
     Dosage: 80 MG/M2, QW; IV
     Route: 042

REACTIONS (5)
  - BLOOD ALBUMIN DECREASED [None]
  - ESCHERICHIA SEPSIS [None]
  - PNEUMOCYSTIS JIROVECI INFECTION [None]
  - SYSTEMIC INFLAMMATORY RESPONSE SYNDROME [None]
  - DISSEMINATED INTRAVASCULAR COAGULATION [None]
